FAERS Safety Report 20212926 (Version 2)
Quarter: 2022Q1

REPORT INFORMATION
  Report Type: Spontaneous
  Country: US (occurrence: None)
  Receive Date: 20211221
  Receipt Date: 20220207
  Transmission Date: 20220424
  Serious: Yes (Other)
  Sender: FDA-Public Use
  Company Number: US-ROCHE-2970849

PATIENT
  Age: 66 Year
  Sex: Female
  Weight: 55.842 kg

DRUGS (8)
  1. HERCEPTIN [Suspect]
     Active Substance: TRASTUZUMAB
     Indication: HER2 positive breast cancer
     Route: 042
     Dates: start: 20190111, end: 201910
  2. HERCEPTIN [Suspect]
     Active Substance: TRASTUZUMAB
     Route: 042
  3. KADCYLA [Suspect]
     Active Substance: ADO-TRASTUZUMAB EMTANSINE
     Indication: Breast cancer metastatic
     Route: 042
     Dates: start: 20220114
  4. CARBOPLATIN [Concomitant]
     Active Substance: CARBOPLATIN
     Indication: HER2 positive breast cancer
     Route: 042
     Dates: start: 20190111, end: 201910
  5. DOCETAXEL [Concomitant]
     Active Substance: DOCETAXEL
     Indication: HER2 positive breast cancer
     Dosage: NO
     Route: 042
     Dates: start: 20190111, end: 201910
  6. CORTISONE [Concomitant]
     Active Substance: CORTISONE
     Indication: Pruritus
     Route: 061
  7. VARICELLA-ZOSTER VACCINE NOS [Concomitant]
     Active Substance: VARICELLA-ZOSTER VACCINE
     Indication: Product used for unknown indication
     Route: 030
     Dates: start: 20220107, end: 20220107
  8. PNEUMOCOCCAL VACCINE POLYVALENT NOS [Concomitant]
     Active Substance: PNEUMOCOCCAL VACCINE POLYVALENT
     Indication: Product used for unknown indication
     Route: 030
     Dates: start: 20211231, end: 20211231

REACTIONS (22)
  - Platelet count decreased [Unknown]
  - Nail discolouration [Recovered/Resolved]
  - Neuropathy peripheral [Unknown]
  - Alopecia [Unknown]
  - Osteoporosis [Unknown]
  - Breast cancer recurrent [Unknown]
  - Axillary mass [Unknown]
  - Abdominal pain upper [Unknown]
  - Head discomfort [Not Recovered/Not Resolved]
  - Pain in extremity [Not Recovered/Not Resolved]
  - Decreased appetite [Unknown]
  - Back pain [Unknown]
  - Fatigue [Unknown]
  - Nausea [Unknown]
  - Pruritus [Unknown]
  - Eye pruritus [Unknown]
  - Lacrimation increased [Unknown]
  - Pulmonary pain [Unknown]
  - White blood cell count decreased [Unknown]
  - Red blood cell count decreased [Unknown]
  - Limb mass [Not Recovered/Not Resolved]
  - Chest pain [Recovered/Resolved]

NARRATIVE: CASE EVENT DATE: 20190601
